FAERS Safety Report 12200281 (Version 1)
Quarter: 2016Q1

REPORT INFORMATION
  Report Type: Spontaneous
  Country: AU (occurrence: AU)
  Receive Date: 20160322
  Receipt Date: 20160322
  Transmission Date: 20160526
  Serious: Yes (Other)
  Sender: FDA-Public Use
  Company Number: AU-UCBSA-2015031644

PATIENT
  Age: 36 Year
  Sex: Female
  Weight: 120 kg

DRUGS (3)
  1. SULFASALAZINE. [Concomitant]
     Active Substance: SULFASALAZINE
     Indication: ANKYLOSING SPONDYLITIS
     Dosage: 1 G, 2X/DAY (BID) FOR YEARS
     Route: 048
  2. CIMZIA [Suspect]
     Active Substance: CERTOLIZUMAB PEGOL
     Indication: ANKYLOSING SPONDYLITIS
     Dosage: 200 MG, EV 2 WEEKS(QOW)
     Dates: start: 201506
  3. INFLIXIMAB [Concomitant]
     Active Substance: INFLIXIMAB
     Indication: PRODUCT USED FOR UNKNOWN INDICATION
     Dosage: UNK
     Dates: end: 2015

REACTIONS (3)
  - Breast feeding [Unknown]
  - Exposure during pregnancy [Unknown]
  - Gestational diabetes [Unknown]

NARRATIVE: CASE EVENT DATE: 201506
